FAERS Safety Report 9188500 (Version 1)
Quarter: 2012Q4

REPORT INFORMATION
  Report Type: 
  Country: ES (occurrence: ES)
  Receive Date: 20121205
  Receipt Date: 20121205
  Transmission Date: 20130627
  Serious: Yes (Other)
  Sender: FDA-Public Use
  Company Number: PHHY2012ES111306

PATIENT
  Sex: Male

DRUGS (1)
  1. ZOLEDRONATE [Suspect]
     Indication: NEOPLASM PROSTATE

REACTIONS (1)
  - Osteonecrosis of jaw [Unknown]
